FAERS Safety Report 7395988-3 (Version None)
Quarter: 2011Q2

REPORT INFORMATION
  Report Type: 
  Country: None (occurrence: None)
  Receive Date: 20110406
  Receipt Date: 20110323
  Transmission Date: 20111010
  Serious: No
  Sender: FDA-Public Use
  Company Number: US-BIOGENIDEC-2011BI012441

PATIENT
  Sex: Female

DRUGS (1)
  1. AVONEX [Suspect]
     Indication: PRODUCT USED FOR UNKNOWN INDICATION
     Route: 030

REACTIONS (5)
  - HYPERSENSITIVITY [None]
  - INJECTION SITE PAIN [None]
  - VISUAL ACUITY REDUCED [None]
  - MUSCULOSKELETAL DISORDER [None]
  - MULTIPLE SCLEROSIS [None]
